FAERS Safety Report 16415443 (Version 1)
Quarter: 2019Q2

REPORT INFORMATION
  Report Type: Spontaneous
  Country: US (occurrence: US)
  Receive Date: 20190611
  Receipt Date: 20190611
  Transmission Date: 20190711
  Serious: No
  Sender: FDA-Public Use
  Company Number: US-SA-2019SA151773

PATIENT
  Age: 68 Year
  Sex: Female

DRUGS (2)
  1. ENOXAPARIN SODIUM. [Suspect]
     Active Substance: ENOXAPARIN SODIUM
     Indication: THROMBOSIS
     Dosage: 60 MG, BID
     Route: 065
  2. LOVENOX [Suspect]
     Active Substance: ENOXAPARIN SODIUM
     Indication: THROMBOSIS
     Dosage: 60 MG, BID, EVERY 12 HOURS AT 9:00 AM AND 9:00 PM.
     Route: 065

REACTIONS (5)
  - Joint swelling [Unknown]
  - Contusion [Unknown]
  - Peripheral swelling [Unknown]
  - Product dose omission [Unknown]
  - Burning sensation [Unknown]
